FAERS Safety Report 13551136 (Version 2)
Quarter: 2017Q2

REPORT INFORMATION
  Report Type: Spontaneous
  Country: CH (occurrence: CH)
  Receive Date: 20170516
  Receipt Date: 20170525
  Transmission Date: 20170830
  Serious: Yes (Hospitalization)
  Sender: FDA-Public Use
  Company Number: CH-PFIZER INC-2017205478

PATIENT
  Age: 27 Year
  Sex: Male
  Weight: 75 kg

DRUGS (8)
  1. MIDAZOLAM [Suspect]
     Active Substance: MIDAZOLAM HYDROCHLORIDE
     Indication: STATUS EPILEPTICUS
     Dosage: UNK
     Route: 045
     Dates: start: 20170409, end: 20170410
  2. TAVEGYL [Suspect]
     Active Substance: CLEMASTINE FUMARATE
     Indication: HYPERSENSITIVITY
     Dosage: 2 MG
     Route: 042
     Dates: start: 20170409
  3. REYATAZ [Suspect]
     Active Substance: ATAZANAVIR SULFATE
     Indication: HIV INFECTION
     Dosage: 300 MG, 1X/DAY (300 MG 1-0-0-0)
     Dates: start: 201008
  4. TRUVADA [Suspect]
     Active Substance: EMTRICITABINE\TENOFOVIR DISOPROXIL FUMARATE
     Indication: HIV INFECTION
     Dosage: [TENOFOVIR 245 MG/ EMTRICITABINE 200 MG] FILM-COATED TABS 1-0-0-0
     Route: 048
     Dates: start: 201008
  5. SOLU-MEDROL [Suspect]
     Active Substance: METHYLPREDNISOLONE SODIUM SUCCINATE
     Indication: HYPERSENSITIVITY
     Dosage: 125 MG
     Route: 042
     Dates: start: 20170409
  6. NORVIR [Suspect]
     Active Substance: RITONAVIR
     Indication: HIV INFECTION
     Dosage: 100 MG, 1X/DAY (100 MG 1-0-0-0)
     Route: 048
     Dates: start: 201008
  7. VALIUM [Suspect]
     Active Substance: DIAZEPAM
     Indication: STATUS EPILEPTICUS
     Dosage: UNK
     Route: 041
     Dates: start: 20170409
  8. ZANTAC [Suspect]
     Active Substance: RANITIDINE HYDROCHLORIDE
     Indication: HYPERSENSITIVITY
     Dosage: UNK
     Dates: start: 20170409

REACTIONS (4)
  - Hypersensitivity [Recovered/Resolved]
  - Metabolic acidosis [Unknown]
  - Lactic acidosis [Unknown]
  - Distributive shock [Recovered/Resolved]

NARRATIVE: CASE EVENT DATE: 20170409
